FAERS Safety Report 13351719 (Version 1)
Quarter: 2017Q1

REPORT INFORMATION
  Report Type: Spontaneous
  Country: US (occurrence: US)
  Receive Date: 20170320
  Receipt Date: 20170320
  Transmission Date: 20170429
  Serious: No
  Sender: FDA-Public Use
  Company Number: US-ELI_LILLY_AND_COMPANY-US201703002490

PATIENT
  Age: 69 Year
  Sex: Male

DRUGS (4)
  1. AXIRON [Suspect]
     Active Substance: TESTOSTERONE
     Dosage: UNK, EACH EVENING
     Route: 065
     Dates: start: 2015
  2. LEVOTHYROXINE. [Concomitant]
     Active Substance: LEVOTHYROXINE
     Route: 065
  3. AXIRON [Suspect]
     Active Substance: TESTOSTERONE
     Indication: BLOOD TESTOSTERONE DECREASED
     Dosage: UNK, EACH MORNING
     Route: 065
     Dates: start: 2015
  4. HYDROCORTISONE. [Suspect]
     Active Substance: HYDROCORTISONE
     Indication: PRODUCT USED FOR UNKNOWN INDICATION
     Route: 065

REACTIONS (1)
  - Fluid retention [Not Recovered/Not Resolved]
